FAERS Safety Report 7978337-9 (Version None)
Quarter: 2011Q4

REPORT INFORMATION
  Report Type: 
  Country: None (occurrence: None)
  Receive Date: 20111214
  Receipt Date: 20111206
  Transmission Date: 20120403
  Serious: Yes (Hospitalization, Other)
  Sender: FDA-Public Use
  Company Number: US-RB-031003-11

PATIENT
  Age: 75 Year
  Sex: Male

DRUGS (5)
  1. MUCINEX DM [Suspect]
     Indication: RESPIRATORY TRACT CONGESTION
     Dosage: TOOK 24 TABLETS IN 5 TO 6 DAYS
     Route: 048
     Dates: start: 20111123, end: 20111128
  2. ATENOLOL [Concomitant]
     Indication: BLOOD PRESSURE
  3. SIMVASTATIN [Concomitant]
     Indication: PRODUCT USED FOR UNKNOWN INDICATION
  4. FINASTERIDE [Concomitant]
     Indication: PROSTATE EXAMINATION ABNORMAL
  5. ADVAIR DISKUS 100/50 [Concomitant]
     Indication: PRODUCT USED FOR UNKNOWN INDICATION

REACTIONS (8)
  - ANGER [None]
  - SPEECH DISORDER [None]
  - TREMOR [None]
  - INSOMNIA [None]
  - MOOD SWINGS [None]
  - PSYCHOMOTOR HYPERACTIVITY [None]
  - ACCIDENTAL OVERDOSE [None]
  - CONFUSIONAL STATE [None]
